FAERS Safety Report 7502522-3 (Version None)
Quarter: 2011Q2

REPORT INFORMATION
  Report Type: 
  Country: None (occurrence: None)
  Receive Date: 20110525
  Receipt Date: 20110517
  Transmission Date: 20111010
  Serious: Yes (Other)
  Sender: FDA-Public Use
  Company Number: IT-JNJFOC-20110507626

PATIENT
  Age: 39 Year
  Sex: Male

DRUGS (5)
  1. PREZISTA [Suspect]
     Indication: SELF INJURIOUS BEHAVIOUR
     Route: 048
     Dates: start: 20110517, end: 20110517
  2. KALETRA [Suspect]
     Indication: SELF INJURIOUS BEHAVIOUR
     Dates: start: 20110517, end: 20110517
  3. NORVIR [Suspect]
     Indication: SELF INJURIOUS BEHAVIOUR
     Dates: start: 20110517, end: 20110517
  4. EBASTINE [Suspect]
     Indication: SELF INJURIOUS BEHAVIOUR
     Route: 048
     Dates: start: 20110517, end: 20110517
  5. TRUVADA [Suspect]
     Indication: SELF INJURIOUS BEHAVIOUR
     Route: 048
     Dates: start: 20110517, end: 20110517

REACTIONS (1)
  - SELF INJURIOUS BEHAVIOUR [None]
